FAERS Safety Report 17651593 (Version 1)
Quarter: 2020Q2

REPORT INFORMATION
  Report Type: Spontaneous
  Country: US (occurrence: US)
  Receive Date: 20200409
  Receipt Date: 20200409
  Transmission Date: 20200713
  Serious: No
  Sender: FDA-Public Use
  Company Number: None

PATIENT
  Age: 40 Year
  Weight: 67.5 kg

DRUGS (6)
  1. VITAMIN C [Concomitant]
     Active Substance: ASCORBIC ACID
  2. VITAMIN B12 [Concomitant]
     Active Substance: CYANOCOBALAMIN
  3. VITAMIN D [Concomitant]
     Active Substance: VITAMIN D NOS
  4. INSULIN NOVOLOG 70/30 [Concomitant]
  5. PEPCID AC ORIGINAL STRENGTH [Suspect]
     Active Substance: FAMOTIDINE
     Indication: GASTROOESOPHAGEAL REFLUX DISEASE
     Dosage: ?          QUANTITY:1 TABLET(S);?
     Route: 048
     Dates: start: 20200401, end: 20200408
  6. LEVAMAIR INSULIN [Concomitant]

REACTIONS (7)
  - Confusional state [None]
  - Heart rate increased [None]
  - Myalgia [None]
  - Headache [None]
  - Palpitations [None]
  - Asthenia [None]
  - Hypersensitivity [None]

NARRATIVE: CASE EVENT DATE: 20200408
